FAERS Safety Report 16830541 (Version 1)
Quarter: 2019Q3

REPORT INFORMATION
  Report Type: Spontaneous
  Country: US (occurrence: US)
  Receive Date: 20190920
  Receipt Date: 20190920
  Transmission Date: 20191005
  Serious: No
  Sender: FDA-Public Use
  Company Number: US-NEUROCRINE BIOSCIENCES INC.-2019NBI02638

PATIENT
  Age: 73 Year
  Sex: Female

DRUGS (2)
  1. INGREZZA [Suspect]
     Active Substance: VALBENAZINE
     Indication: PRODUCT USED FOR UNKNOWN INDICATION
     Dates: start: 2019, end: 2019
  2. INGREZZA [Suspect]
     Active Substance: VALBENAZINE
     Dates: start: 2019, end: 2019

REACTIONS (2)
  - Drug ineffective [None]
  - Tremor [Recovering/Resolving]

NARRATIVE: CASE EVENT DATE: 2019
